FAERS Safety Report 9189128 (Version 1)
Quarter: 2013Q1

REPORT INFORMATION
  Report Type: Spontaneous
  Country: US (occurrence: US)
  Receive Date: 20130326
  Receipt Date: 20130326
  Transmission Date: 20140127
  Serious: No
  Sender: FDA-Public Use
  Company Number: US-009507513-1303USA011961

PATIENT
  Sex: Male
  Weight: 95.24 kg

DRUGS (3)
  1. VICTRELIS [Suspect]
     Indication: HEPATITIS C
     Dosage: 800 MG, TID
     Route: 048
     Dates: start: 20130214
  2. RIBAPAK [Suspect]
     Dosage: UNK
     Dates: start: 20130117
  3. PEGASYS [Suspect]
     Dosage: UNK
     Dates: start: 20130117

REACTIONS (4)
  - Headache [Unknown]
  - Fatigue [Unknown]
  - Asthenia [Unknown]
  - Rash [Unknown]
